FAERS Safety Report 9438212 (Version 1)
Quarter: 2013Q3

REPORT INFORMATION
  Report Type: Spontaneous
  Country: US (occurrence: US)
  Receive Date: 20130802
  Receipt Date: 20130802
  Transmission Date: 20140515
  Serious: Yes (Other)
  Sender: FDA-Public Use
  Company Number: US-BRISTOL-MYERS SQUIBB COMPANY-16978694

PATIENT
  Sex: Male

DRUGS (2)
  1. COUMADIN [Suspect]
  2. CELEBREX [Suspect]

REACTIONS (1)
  - Procedural haemorrhage [Recovered/Resolved]
